FAERS Safety Report 6751397-9 (Version None)
Quarter: 2010Q2

REPORT INFORMATION
  Report Type: 
  Country: None (occurrence: None)
  Receive Date: 20100602
  Receipt Date: 20100531
  Transmission Date: 20101027
  Serious: Yes (Death)
  Sender: FDA-Public Use
  Company Number: MX-ASTRAZENECA-2010SE22736

PATIENT
  Age: 60 Year
  Sex: Male

DRUGS (6)
  1. SEROQUEL XR [Suspect]
     Indication: BIPOLAR I DISORDER
     Route: 048
     Dates: start: 20100401, end: 20100501
  2. ZYPREXA [Concomitant]
     Indication: BIPOLAR I DISORDER
     Route: 048
     Dates: start: 20100201, end: 20100401
  3. CLONAZEPAM [Concomitant]
     Indication: BIPOLAR I DISORDER
     Route: 048
     Dates: start: 20070101, end: 20100501
  4. DEMEROL [Concomitant]
     Indication: BIPOLAR I DISORDER
     Route: 048
     Dates: end: 20100501
  5. EFFEXOR [Concomitant]
     Indication: BIPOLAR I DISORDER
     Route: 048
     Dates: start: 20070101, end: 20100501
  6. EFFEXOR [Concomitant]
     Route: 048
     Dates: start: 20070101, end: 20100501

REACTIONS (2)
  - BIPOLAR I DISORDER [None]
  - COMPLETED SUICIDE [None]
